FAERS Safety Report 18257493 (Version 2)
Quarter: 2020Q3

REPORT INFORMATION
  Report Type: Spontaneous
  Country: IN (occurrence: IN)
  Receive Date: 20200911
  Receipt Date: 20200922
  Transmission Date: 20201103
  Serious: Yes (Death, Other)
  Sender: FDA-Public Use
  Company Number: IN-ARBOR PHARMACEUTICALS, LLC-IN-2020ARB000730

PATIENT
  Age: 52 Year
  Sex: Female

DRUGS (8)
  1. TRIPTODUR [Suspect]
     Active Substance: TRIPTORELIN
     Dosage: UNK
  2. CAPECITABINE. [Suspect]
     Active Substance: CAPECITABINE
     Indication: BREAST MASS
     Dosage: UNK
     Dates: start: 201502
  3. TRIPTODUR [Suspect]
     Active Substance: TRIPTORELIN
     Dosage: UNK
  4. TAMOXIFEN [Suspect]
     Active Substance: TAMOXIFEN
     Indication: BREAST MASS
     Dosage: UNK
  5. PACLITAXEL. [Suspect]
     Active Substance: PACLITAXEL
     Indication: BREAST MASS
     Dosage: UNK
     Dates: start: 201509
  6. CARBOPLATIN. [Suspect]
     Active Substance: CARBOPLATIN
     Indication: BREAST MASS
     Dosage: UNK
     Dates: start: 201509
  7. TRIPTODUR [Suspect]
     Active Substance: TRIPTORELIN
     Indication: BREAST MASS
     Dosage: UNK
     Route: 065
  8. DOCETAXEL. [Suspect]
     Active Substance: DOCETAXEL
     Indication: BREAST MASS
     Dosage: UNK
     Dates: start: 201502

REACTIONS (2)
  - Disease progression [Fatal]
  - Paraneoplastic syndrome [Fatal]
